FAERS Safety Report 6985010-2 (Version None)
Quarter: 2010Q3

REPORT INFORMATION
  Report Type: 
  Country: None (occurrence: None)
  Receive Date: 20100915
  Receipt Date: 20100902
  Transmission Date: 20110219
  Serious: Yes (Hospitalization, Other)
  Sender: FDA-Public Use
  Company Number: PHHY2010AU44801

PATIENT
  Sex: Female
  Weight: 135.6 kg

DRUGS (7)
  1. CLOZARIL [Suspect]
     Dosage: 250 MG, UNK
     Route: 048
     Dates: start: 19980924
  2. VALPROATE SODIUM [Concomitant]
     Dosage: 1000 MG, BID
     Route: 048
  3. PAROXETINE HCL [Concomitant]
     Dosage: 40 MG, QHS
     Route: 048
  4. ATENOLOL [Concomitant]
     Dosage: 50 MG MANE
     Route: 048
  5. AVAPRO [Concomitant]
     Dosage: 150 MG MANE
     Route: 048
  6. DIAFORMIN [Concomitant]
     Dosage: 500 MG, BID
  7. CRESTOR [Concomitant]

REACTIONS (7)
  - HEPATIC ENZYME INCREASED [None]
  - PLEURAL DECORTICATION [None]
  - PNEUMONIA [None]
  - RESPIRATORY DISORDER [None]
  - SEPTIC SHOCK [None]
  - THORACOTOMY [None]
  - VENTRICULAR HYPERTROPHY [None]
